FAERS Safety Report 8153933-7 (Version None)
Quarter: 2012Q1

REPORT INFORMATION
  Report Type: 
  Country: None (occurrence: None)
  Receive Date: 20120221
  Receipt Date: 20120221
  Transmission Date: 20120608
  Serious: Yes (Other)
  Sender: FDA-Public Use
  Company Number: None

PATIENT
  Age: 18 Year
  Sex: Female
  Weight: 75.296 kg

DRUGS (1)
  1. MEDROXYPROGESTERONE ACETATE [Suspect]
     Indication: CONTRACEPTION
     Dosage: 150 MG
     Route: 030
     Dates: start: 20111128, end: 20120217

REACTIONS (2)
  - PREGNANCY WITH INJECTABLE CONTRACEPTIVE [None]
  - MATERNAL EXPOSURE DURING PREGNANCY [None]
